FAERS Safety Report 18860802 (Version 1)
Quarter: 2021Q1

REPORT INFORMATION
  Report Type: Other
  Country: PL (occurrence: PL)
  Receive Date: 20210208
  Receipt Date: 20210208
  Transmission Date: 20210420
  Serious: Yes (Death, Hospitalization, Other)
  Sender: FDA-Public Use
  Company Number: PL-SERVIER-S19014765

PATIENT

DRUGS (15)
  1. TN UNSPECIFIED [VORICONAZOLE] [Suspect]
     Active Substance: VORICONAZOLE
     Indication: DISSEMINATED ASPERGILLOSIS
     Dosage: UNK
     Route: 065
  2. TN UNSPECIFIED [CASPOFUNGIN ACETATE] [Suspect]
     Active Substance: CASPOFUNGIN ACETATE
     Indication: DISSEMINATED ASPERGILLOSIS
     Dosage: UNK
     Route: 065
  3. TN UNSPECIFIED [DAUNORUBICIN] [Suspect]
     Active Substance: DAUNORUBICIN
     Indication: ACUTE LYMPHOCYTIC LEUKAEMIA
     Dosage: 30 MG/M2
     Route: 065
  4. TN UNSPECIFIED [METHOTREXATE] [Suspect]
     Active Substance: METHOTREXATE
     Indication: ACUTE LYMPHOCYTIC LEUKAEMIA
     Dosage: 12 MG, PER DOSE
     Route: 037
  5. TN UNSPECIFIED [CASPOFUNGIN] [Suspect]
     Active Substance: CASPOFUNGIN
     Indication: DISSEMINATED ASPERGILLOSIS
     Dosage: UNK
     Route: 065
  6. TN UNSPECIFIED [VINCRISTINE SULFATE] [Suspect]
     Active Substance: VINCRISTINE SULFATE
     Indication: ACUTE LYMPHOCYTIC LEUKAEMIA
     Dosage: 1.5 MG/M2 PER DOSE
     Route: 042
  7. TN UNSPECIFIED [MITOXANTRONE HYDROCHLORIDE] [Suspect]
     Active Substance: MITOXANTRONE HYDROCHLORIDE
     Indication: T-CELL TYPE ACUTE LEUKAEMIA
     Dosage: UNK
     Route: 065
  8. TN UNSPECIFIED [ASPARAGINASE] [Suspect]
     Active Substance: ASPARAGINASE
     Indication: ACUTE LYMPHOCYTIC LEUKAEMIA
     Dosage: 5000 IU, PER DOSE
     Route: 065
  9. TN UNSPECIFIED [DEXAMETHASONE] [Suspect]
     Active Substance: DEXAMETHASONE
     Indication: T-CELL TYPE ACUTE LEUKAEMIA
     Dosage: UNK
     Route: 065
  10. TN UNSPECIFIED [PREDNISONE] [Suspect]
     Active Substance: PREDNISONE
     Indication: ACUTE LYMPHOCYTIC LEUKAEMIA
     Dosage: 60 MG/M2, QD
     Route: 048
  11. TN UNSPECIFIED [ASPARAGINASE] [Concomitant]
     Active Substance: ASPARAGINASE
     Indication: PRODUCT USED FOR UNKNOWN INDICATION
     Dosage: UNK
     Route: 065
  12. TN UNSPECIFIED [PREDNISOLONE] [Suspect]
     Active Substance: PREDNISOLONE
     Indication: T-CELL TYPE ACUTE LEUKAEMIA
     Dosage: UNK
     Route: 065
  13. AMBISOME [Suspect]
     Active Substance: AMPHOTERICIN B
     Indication: DISSEMINATED ASPERGILLOSIS
     Dosage: UNK
     Route: 065
  14. PEGASPARGASE [Suspect]
     Active Substance: PEGASPARGASE
     Indication: T-CELL TYPE ACUTE LEUKAEMIA
     Dosage: UNK
     Route: 065
  15. TN UNSPECIFIED [VORICONAZOLE] [Suspect]
     Active Substance: VORICONAZOLE
     Indication: DISSEMINATED ASPERGILLOSIS

REACTIONS (14)
  - Therapeutic response decreased [Unknown]
  - Leukopenia [Not Recovered/Not Resolved]
  - Septic shock [Unknown]
  - Pancreatitis acute [Unknown]
  - Respiratory failure [Unknown]
  - Drug ineffective [Fatal]
  - Agranulocytosis [Not Recovered/Not Resolved]
  - Cardiac failure [Fatal]
  - Abscess fungal [Not Recovered/Not Resolved]
  - Multiple organ dysfunction syndrome [Fatal]
  - Myelosuppression [Unknown]
  - Renal failure [Fatal]
  - Pyrexia [Not Recovered/Not Resolved]
  - Disseminated aspergillosis [Not Recovered/Not Resolved]

NARRATIVE: CASE EVENT DATE: 2021
